FAERS Safety Report 24335034 (Version 1)
Quarter: 2024Q3

REPORT INFORMATION
  Report Type: Spontaneous
  Country: US (occurrence: US)
  Receive Date: 20240918
  Receipt Date: 20240918
  Transmission Date: 20241017
  Serious: Yes (Hospitalization)
  Sender: AMGEN
  Company Number: US-AMGEN-USASP2024179472

PATIENT
  Age: 56 Year
  Sex: Male

DRUGS (2)
  1. KRYSTEXXA [Suspect]
     Active Substance: PEGLOTICASE
     Indication: Gout
     Dosage: UNK
     Route: 042
  2. KRYSTEXXA [Suspect]
     Active Substance: PEGLOTICASE
     Dosage: UNK (6TH INFUSION)
     Route: 042
     Dates: start: 20240906

REACTIONS (7)
  - Headache [Not Recovered/Not Resolved]
  - Hypertension [Unknown]
  - Nausea [Unknown]
  - Blood potassium decreased [Unknown]
  - Urine albumin/creatinine ratio increased [Unknown]
  - Blood uric acid decreased [Unknown]
  - Glomerular filtration rate decreased [Unknown]

NARRATIVE: CASE EVENT DATE: 20240906
